FAERS Safety Report 7920591-3 (Version None)
Quarter: 2011Q4

REPORT INFORMATION
  Report Type: 
  Country: None (occurrence: None)
  Receive Date: 20111117
  Receipt Date: 20111111
  Transmission Date: 20120403
  Serious: Yes (Hospitalization, Other)
  Sender: FDA-Public Use
  Company Number: PHEH2007US15445

PATIENT
  Sex: Female
  Weight: 68.027 kg

DRUGS (82)
  1. OMEPRAZOLE [Concomitant]
  2. PROTONIX [Concomitant]
  3. PERCOCET [Concomitant]
  4. HYDROCHLOROTHIAZIDE [Concomitant]
  5. POTASSIUM CHLORIDE [Concomitant]
     Dosage: 10 MG / DAILY
  6. NITROFURAN [Concomitant]
     Dosage: 100 MG / TWICE DAILY
  7. CYMBALTA [Concomitant]
     Dosage: 30 MG
  8. STEROIDS NOS [Concomitant]
     Dosage: 20 MG
  9. TEQUIN [Concomitant]
     Dosage: 400 MG / DAILY
  10. PAMIDRONATE DISODIUM [Concomitant]
     Dosage: UNK
  11. ROPINIROLE HYDROCHLORIDE [Concomitant]
  12. CEFUROXIME [Concomitant]
  13. REVLIMID [Concomitant]
     Dosage: UNK
     Dates: end: 20070701
  14. XANAX [Concomitant]
  15. ZETIA [Concomitant]
     Dosage: 10 MG / DAILY
  16. DESIPRAMIDE HCL [Concomitant]
     Dosage: 10 MG
  17. PRINZIDE [Concomitant]
     Dosage: 10/12.5 / DAILY
  18. VALIUM [Concomitant]
     Dosage: UNK
  19. QUININE SULFATE [Concomitant]
     Indication: MUSCLE SPASMS
     Dosage: 260 MG/ AS NEEDED
     Route: 048
  20. PRAVASTATIN SODIUM [Concomitant]
  21. NITROFURANTOIN [Concomitant]
  22. ZOLOFT [Concomitant]
     Dosage: 50 MG / TWICE DAILY
  23. MORPHINE SULFATE [Concomitant]
     Dosage: 60 MG / TWICE DAILY
  24. ATIVAN [Concomitant]
     Dosage: 1 MG / TWICE DAILY
  25. ZOLEDRONIC [Concomitant]
     Dosage: UNK
  26. ALEVE                              /00256202/ [Concomitant]
     Dosage: UNK
  27. LORATADINE [Concomitant]
  28. ZOMETA [Suspect]
  29. VALTREX [Concomitant]
  30. OXYCODONE HCL AND ACETAMINOPHEN [Concomitant]
  31. PRAVASTATIN [Concomitant]
     Dosage: 80 MG / DAILY
  32. PHENERGAN VC [Concomitant]
     Dosage: UNK
  33. ZITHROMAX [Concomitant]
     Dosage: UNK
  34. PROCRIT                            /00909301/ [Concomitant]
     Dosage: UNK / EVERY 2 WEEKS
  35. ROXICET [Concomitant]
     Dosage: UNK
  36. NEURONTIN [Concomitant]
     Dosage: 300 MG /T.I.D.
     Route: 048
  37. COMPRO [Concomitant]
  38. AREDIA [Suspect]
  39. RADIATION THERAPY [Concomitant]
  40. ZOLOFT [Concomitant]
     Dosage: 100 MG /  DAILY
  41. TEMAZEPAM [Concomitant]
  42. ARANESP [Concomitant]
  43. ROXICODONE [Concomitant]
     Dosage: 5 MG / AS NEEDED
  44. GLYBURIDE [Concomitant]
     Dosage: 5 MG / DAILY BEFORE NOON
  45. VELCADE [Concomitant]
     Dosage: UNK
     Route: 042
  46. CYTOXAN [Concomitant]
     Dosage: UNK
  47. DILAUDID [Concomitant]
     Indication: PAIN
     Dosage: 2 MG / 1 OR 2 TABS EVERY 2 HRS, PRN
  48. SERTRALINE HYDROCHLORIDE [Concomitant]
  49. CIPRO [Concomitant]
  50. ANTINEOPLASTIC AGENTS [Concomitant]
  51. POTASSIUM [Concomitant]
  52. DEXAMETHASONE [Concomitant]
  53. PANTOPRAZOLE [Concomitant]
     Dosage: 40 MG / DAILY
  54. LORAZEPAM [Concomitant]
     Dosage: 7 MG / AS NEEDED
  55. ATENOLOL [Concomitant]
     Dosage: 50 MG / DAILY
  56. ALENDRONATE SODIUM [Concomitant]
  57. THALIDOMIDE [Concomitant]
     Dosage: UNK
  58. ACYCLOVIR [Concomitant]
     Dosage: 800 MG / 5 X DAILY FOR 5 DAYS
     Route: 048
  59. LEVAQUIN [Concomitant]
  60. ENABLEX [Concomitant]
  61. PRAVACHOL [Concomitant]
  62. REQUIP [Concomitant]
  63. LISINOPRIL [Concomitant]
  64. ASPIRIN [Concomitant]
     Dosage: 81 MG / DAILY
  65. POTASSIUM CHLORIDE [Concomitant]
     Dosage: 20 MG/ 3 X DAY FOR 2 DAYS, THEN BID
  66. LIPITOR [Concomitant]
     Dosage: 40 MG / PM
  67. RANITIDINE [Concomitant]
     Dosage: 150 MG / DAILY
  68. RESTORIL [Concomitant]
     Dosage: 1.5 MG / EVERY NIGHT AT BEDTIME
  69. GABAPENTIN [Concomitant]
     Dosage: 100 / T.I.D.
  70. PROMETHAZINE [Concomitant]
  71. FUROSEMIDE [Concomitant]
  72. FEXOFENADINE HCL [Concomitant]
  73. PREDNISONE TAB [Concomitant]
  74. NOVOLIN 70/30 [Concomitant]
  75. IPRATROPIUM BROMIDE [Concomitant]
  76. MACROBID [Concomitant]
  77. OXYCONTIN [Concomitant]
  78. OXYCODONE HCL [Concomitant]
     Dosage: 40 MG / TWICE DAILY
  79. DECADRON [Concomitant]
     Dosage: UNK
  80. ZOCOR [Concomitant]
     Dosage: 40 MG / TWICE DAILY
  81. ZANTAC [Concomitant]
     Dosage: UNK
  82. DEPO-MEDROL [Concomitant]
     Dosage: UNK

REACTIONS (51)
  - LUMBAR VERTEBRAL FRACTURE [None]
  - TRACHEOBRONCHITIS [None]
  - NEUROPATHY PERIPHERAL [None]
  - WEIGHT INCREASED [None]
  - GROIN PAIN [None]
  - TENDON DISORDER [None]
  - ONYCHALGIA [None]
  - INFLAMMATION [None]
  - PATELLA FRACTURE [None]
  - HAEMATURIA [None]
  - NEUROFIBROMA [None]
  - SPLENOMEGALY [None]
  - BONE DISORDER [None]
  - OSTEOMYELITIS [None]
  - INJURY [None]
  - FACIAL PAIN [None]
  - MYALGIA [None]
  - INFECTION [None]
  - RENAL FAILURE [None]
  - BIOPSY BONE MARROW ABNORMAL [None]
  - ANAEMIA [None]
  - LEUKOPENIA [None]
  - PAIN [None]
  - DIABETES MELLITUS [None]
  - NAIL DYSTROPHY [None]
  - MULTIPLE MYELOMA [None]
  - THROMBOCYTOPENIA [None]
  - PLASMACYTOSIS [None]
  - BONE MARROW FAILURE [None]
  - SPINAL DISORDER [None]
  - DENTAL CARIES [None]
  - PARAESTHESIA [None]
  - CYSTITIS NONINFECTIVE [None]
  - SPINAL OSTEOARTHRITIS [None]
  - RADICULAR PAIN [None]
  - DYSPHONIA [None]
  - PLASMACYTOMA [None]
  - PNEUMONIA [None]
  - PAIN IN EXTREMITY [None]
  - FALL [None]
  - OEDEMA PERIPHERAL [None]
  - DIZZINESS [None]
  - INTERVERTEBRAL DISC DISORDER [None]
  - SPINAL COLUMN STENOSIS [None]
  - OSTEONECROSIS OF JAW [None]
  - ARTHRALGIA [None]
  - CARDIAC FAILURE CONGESTIVE [None]
  - ANXIETY [None]
  - BACK PAIN [None]
  - JOINT EFFUSION [None]
  - ONYCHOMYCOSIS [None]
